FAERS Safety Report 4324996-1 (Version None)
Quarter: 2004Q1

REPORT INFORMATION
  Report Type: 
  Country: None (occurrence: None)
  Receive Date: 20040323
  Receipt Date: 20040216
  Transmission Date: 20041129
  Serious: No
  Sender: FDA-Public Use
  Company Number: US_0402100879

PATIENT
  Age: 47 Year
  Sex: Male
  Weight: 109 kg

DRUGS (5)
  1. CIALIS [Suspect]
     Indication: ERECTILE DYSFUNCTION
     Dosage: 20 MG
     Dates: start: 20040215
  2. PROCARDIA [Concomitant]
  3. INDERAL [Concomitant]
  4. VIAGRA [Concomitant]
  5. ANDROGEL [Concomitant]

REACTIONS (1)
  - DRUG INEFFECTIVE [None]
